FAERS Safety Report 21036415 (Version 1)
Quarter: 2022Q3

REPORT INFORMATION
  Report Type: Spontaneous
  Country: GB (occurrence: GB)
  Receive Date: 20220702
  Receipt Date: 20220702
  Transmission Date: 20221026
  Serious: Yes (Hospitalization, Other)
  Sender: FDA-Public Use
  Company Number: GB-CELLTRION INC.-2022GB002216

PATIENT

DRUGS (118)
  1. LOPERAMIDE [Suspect]
     Active Substance: LOPERAMIDE
     Indication: Diarrhoea
     Dosage: 2 MILLIGRAM, AS NECESSARY (PRN)
     Route: 048
  2. ABRAXANE [Suspect]
     Active Substance: PACLITAXEL
     Indication: Breast cancer metastatic
     Dosage: 2520 MILLIGRAM, EVERY WEEK (840 MILLIGRAM, )
     Route: 041
     Dates: start: 20150615, end: 20150615
  3. ABRAXANE [Suspect]
     Active Substance: PACLITAXEL
     Indication: Product used for unknown indication
     Dosage: 1701 MILLIGRAM, EVERY WEEK (567 MILLIGRAM)
     Route: 041
     Dates: start: 20150616, end: 20150616
  4. ABRAXANE [Suspect]
     Active Substance: PACLITAXEL
     Dosage: 1020 MILLIGRAM, EVERY WEEK (340 MILLIGRAM)
     Route: 041
     Dates: start: 20150730, end: 20150820
  5. ABRAXANE [Suspect]
     Active Substance: PACLITAXEL
     Dosage: 1020 MILLIGRAM, EVERY WEEK (340 MILLIGRAM)
     Route: 041
     Dates: start: 20150730, end: 20150820
  6. ABRAXANE [Suspect]
     Active Substance: PACLITAXEL
     Dosage: 1020 MILLIGRAM, EVERY WEEK (340 MILLIGRAM)
     Route: 041
     Dates: start: 20150820, end: 20150820
  7. ABRAXANE [Suspect]
     Active Substance: PACLITAXEL
     Dosage: 1020 MILLIGRAM, EVERY WEEK (340 MILLIGRAM)
     Route: 041
     Dates: start: 20150910, end: 20150910
  8. ABRAXANE [Suspect]
     Active Substance: PACLITAXEL
     Dosage: 1020 MILLIGRAM, EVERY WEEK (340 MILLIGRAM)
     Route: 041
     Dates: start: 20151022, end: 20151022
  9. ABRAXANE [Suspect]
     Active Substance: PACLITAXEL
     Dosage: 390 MILLIGRAM, EVERY WEEK (130 MILLIGRAM)
     Route: 041
     Dates: start: 20160709
  10. BENZYDAMINE [Suspect]
     Active Substance: BENZYDAMINE
     Indication: Mucosal inflammation
     Dosage: UNK (15 ML/CM3, LIQUID MOUTHWASH)
     Route: 048
  11. BENZYDAMINE [Suspect]
     Active Substance: BENZYDAMINE
     Indication: Product used for unknown indication
     Dosage: UNK (LIQUID MOUTHWASH 15 ML/CM3)
     Route: 048
  12. DOCETAXEL [Suspect]
     Active Substance: DOCETAXEL
     Indication: Breast cancer metastatic
     Dosage: 260 MILLIGRAM, THREE TIMES A WEEK
     Route: 042
  13. DOCETAXEL [Suspect]
     Active Substance: DOCETAXEL
     Indication: Product used for unknown indication
     Dosage: 260 MILLIGRAM ((DRUG STRUCTURE DOSAGE NUMBER: 130MG)
     Route: 042
  14. DOCETAXEL [Suspect]
     Active Substance: DOCETAXEL
     Dosage: 260 MILLIGRAM, THREE TIMES A WEEK
     Route: 042
  15. DOCETAXEL [Suspect]
     Active Substance: DOCETAXEL
     Dosage: 130 MILLIGRAM, EVERY 3 WEEKS (DRUG STRUCTURE DOSAGE NUMBER: 3WEEK)
     Route: 042
     Dates: start: 20150616, end: 20150616
  16. DOCETAXEL [Suspect]
     Active Substance: DOCETAXEL
     Dosage: 130 MILLIGRAM
     Route: 042
     Dates: start: 20150616, end: 20150616
  17. DOCETAXEL [Suspect]
     Active Substance: DOCETAXEL
     Dosage: 130 MILLIGRAM, THREE TIMES A WEEK
     Route: 042
     Dates: start: 20150616, end: 20150616
  18. DOCETAXEL [Suspect]
     Active Substance: DOCETAXEL
     Dosage: 130 MILLIGRAM, Q3WK  (DRUG STRUCTURE DOSAGE NUMBER: 130MG, DRUG INTERVAL DOSAGE UNIT NUMBER: 3WEEK)
     Route: 042
     Dates: start: 20150616, end: 20150709
  19. DOCETAXEL [Suspect]
     Active Substance: DOCETAXEL
     Dosage: 130 MILLIGRAM, THREE TIMES A WEEK
     Route: 042
     Dates: start: 20150616, end: 20150709
  20. DOCETAXEL [Suspect]
     Active Substance: DOCETAXEL
     Dosage: 260 MILLIGRAM, EVERY WEEK (130 MILLIGRAM)
     Route: 041
     Dates: start: 20150616, end: 20150709
  21. DOCETAXEL [Suspect]
     Active Substance: DOCETAXEL
     Dosage: 130 MILLIGRAM, EVERY 2 WEEKS (130 MG, QOW, 130 MG, BIW (130 MG, Q3W))
     Route: 042
     Dates: start: 20150709, end: 20150709
  22. DOCETAXEL [Suspect]
     Active Substance: DOCETAXEL
     Dosage: 130 MILLIGRAM, THREE TIMES A WEEK (130 MG, BIW)
     Route: 042
     Dates: start: 20150709, end: 20150709
  23. DOCETAXEL [Suspect]
     Active Substance: DOCETAXEL
     Dosage: 390 MILLIGRAM, EVERY WEEK (130 MILLIGRAM)
     Route: 041
     Dates: start: 20150709, end: 20150709
  24. DOCETAXEL [Suspect]
     Active Substance: DOCETAXEL
     Dosage: 130 MILLIGRAM, ONCE A DAY (DRUG STRUCTURE DOSAGE NUMBER:3WEEK) (PH)
     Route: 042
     Dates: start: 20150709, end: 20150709
  25. DOCETAXEL [Suspect]
     Active Substance: DOCETAXEL
     Dosage: 130 MILLIGRAM, EVERY 2 WEEKS (DRUG STRUCTURE DOSAGE NUMBER:3WEEK)
     Route: 042
     Dates: start: 20150709, end: 20150709
  26. DOCETAXEL [Suspect]
     Active Substance: DOCETAXEL
     Dosage: UNK UNK, EVERY WEEK
     Route: 041
     Dates: start: 20150709, end: 20150709
  27. HERCEPTIN [Suspect]
     Active Substance: TRASTUZUMAB
     Indication: Breast cancer metastatic
     Dosage: 567 MILLIGRAM (ONCE A DAY FOR LOADING DOSE; DRUG STRUCTURE DOSAGE UNIT NUMBER:)
     Route: 042
     Dates: start: 20150616, end: 20150616
  28. HERCEPTIN [Suspect]
     Active Substance: TRASTUZUMAB
     Indication: Product used for unknown indication
     Dosage: 420 MILLIGRAM, EVERY 3 WEEKS (FOR LOADING DOSE; DRUG STRUCTUREDOSAGE NUMBER: 567MG, DRUG INTERVAL DO
     Route: 042
     Dates: start: 20150709, end: 20150709
  29. HERCEPTIN [Suspect]
     Active Substance: TRASTUZUMAB
     Dosage: 420 MILLIGRAM, THREE TIMES A WEEK
     Route: 042
     Dates: start: 20150709, end: 20150709
  30. HERCEPTIN [Suspect]
     Active Substance: TRASTUZUMAB
     Dosage: 420 MILLIGRAM, EVERY 3 WEEKS (FOR LOADING DOSE; DRUG STRUCTUREDOSAGE NUMBER: 567MG, DRUG INTERVAL DO
     Route: 042
     Dates: start: 20150709
  31. HERCEPTIN [Suspect]
     Active Substance: TRASTUZUMAB
     Dosage: 420 MILLIGRAM, EVERY 3 WEEKS (MAINTAINANCE DOSE)
     Route: 042
     Dates: start: 20150709
  32. HERCEPTIN [Suspect]
     Active Substance: TRASTUZUMAB
     Dosage: 420 MILLIGRAM, EVERY 2 WEEKS (420 MG, Q3W)
     Route: 042
     Dates: start: 20150709, end: 20150709
  33. IMODIUM [Suspect]
     Active Substance: LOPERAMIDE HYDROCHLORIDE
     Indication: Diarrhoea
     Dosage: 2 MILLIGRAM, AS NECESSARY
     Route: 048
  34. IMODIUM [Suspect]
     Active Substance: LOPERAMIDE HYDROCHLORIDE
     Dosage: 2 MILLIGRAM, AS NECESSARY (PRN)
     Route: 048
  35. PACLITAXEL [Suspect]
     Active Substance: PACLITAXEL
     Indication: Breast cancer metastatic
     Dosage: 420 MILLIGRAM, THREE TIMES A WEEK
     Route: 042
     Dates: start: 20150609, end: 20150609
  36. PACLITAXEL [Suspect]
     Active Substance: PACLITAXEL
     Dosage: 420 MILLIGRAM, THREE TIMES A WEEK
     Route: 042
     Dates: start: 20150609, end: 20150609
  37. PACLITAXEL [Suspect]
     Active Substance: PACLITAXEL
     Dosage: 340 MILLIGRAM, EVERY 3 WEEKS
     Route: 042
     Dates: start: 20150609, end: 20150609
  38. PACLITAXEL [Suspect]
     Active Substance: PACLITAXEL
     Dosage: 567 MILLIGRAM (TOTAL (CUMULATIVE DOSE TO FIRST REACTION: 2039.535MG)
     Route: 042
     Dates: start: 20150616, end: 20150616
  39. PACLITAXEL [Suspect]
     Active Substance: PACLITAXEL
     Dosage: 567 MILLIGRAM (1X; IN TOTAL)
     Route: 041
     Dates: start: 20150616, end: 20150616
  40. PACLITAXEL [Suspect]
     Active Substance: PACLITAXEL
     Dosage: 567 MILLIGRAM, THREE TIMES A WEEK
     Route: 041
     Dates: start: 20150616
  41. PACLITAXEL [Suspect]
     Active Substance: PACLITAXEL
     Dosage: 420 MILLIGRAM (340 MG,Q3W)
     Route: 042
     Dates: start: 20150709, end: 20150709
  42. PACLITAXEL [Suspect]
     Active Substance: PACLITAXEL
     Dosage: 340 MILLIGRAM, THREE TIMES A WEEK
     Route: 042
     Dates: start: 20150709, end: 20150709
  43. PACLITAXEL [Suspect]
     Active Substance: PACLITAXEL
     Dosage: 420 MILLIGRAM, EVERY 3 WEEKS ((CUMULATIVE DOSE TO FIRST REACTION:2039.535MG)
     Route: 042
     Dates: start: 20150709, end: 20150709
  44. PACLITAXEL [Suspect]
     Active Substance: PACLITAXEL
     Dosage: 450 MILLIGRAM, EVERY 2 WEEKS (450 MG, Q3W)
     Route: 042
     Dates: start: 20150730, end: 20150730
  45. PACLITAXEL [Suspect]
     Active Substance: PACLITAXEL
     Dosage: 340 MILLIGRAM, THREE TIMES A WEEK
     Route: 042
     Dates: start: 20150730, end: 20150730
  46. PACLITAXEL [Suspect]
     Active Substance: PACLITAXEL
     Dosage: 450 MILLIGRAM, EVERY 2 WEEKS ((CUMULATIVE DOSE TO FIRST REACTION:2039.535MG)
     Route: 042
     Dates: start: 20150730, end: 20150730
  47. PACLITAXEL [Suspect]
     Active Substance: PACLITAXEL
     Dosage: 450 MILLIGRAMM, THREE TIMES A WEEK
     Route: 042
     Dates: start: 20150730, end: 20150730
  48. PACLITAXEL [Suspect]
     Active Substance: PACLITAXEL
     Dosage: 450 MILLIGRAM, THREE TIMES A WEEK
     Route: 042
     Dates: start: 20150730, end: 20150730
  49. PACLITAXEL [Suspect]
     Active Substance: PACLITAXEL
     Dosage: 1350 MILLIGRAM, THREE TIMES A WEEK (450 MG, QW3 (LOADING DOSE)
     Route: 042
     Dates: start: 20150730, end: 20150730
  50. PACLITAXEL [Suspect]
     Active Substance: PACLITAXEL
     Dosage: 1350 MILLIGRAM, EVERY WEEK (CUMULATIVE DOSE TO FIRST REACTION:2039.535MG)
     Route: 042
     Dates: start: 20150730, end: 20150730
  51. PACLITAXEL [Suspect]
     Active Substance: PACLITAXEL
     Dosage: 1350 MILLIGRAM, EVERY WEEK (450 MG, QW3 (LOADING DOSE)
     Route: 042
     Dates: start: 20150730, end: 20150730
  52. PACLITAXEL [Suspect]
     Active Substance: PACLITAXEL
     Dosage: 450 MILLIGRAM, EVERY 3 WEEKS ((CUMULATIVE DOSE TO FIRST REACTION:2039.535MG)
     Route: 042
     Dates: start: 20150730, end: 20150730
  53. PACLITAXEL [Suspect]
     Active Substance: PACLITAXEL
     Dosage: 340 MILLIGRAM, THREE TIMES A WEEK (LOADING DOSE)
     Route: 042
     Dates: start: 20150730, end: 20150820
  54. PACLITAXEL [Suspect]
     Active Substance: PACLITAXEL
     Dosage: 450 MILLIGRAM (3)
     Route: 042
     Dates: start: 20150730, end: 20150820
  55. PACLITAXEL [Suspect]
     Active Substance: PACLITAXEL
     Dosage: 340 MILLIGRAM, THREE TIMES A WEEK (LOADING DOSE)
     Route: 042
     Dates: start: 20150820, end: 20150820
  56. PACLITAXEL [Suspect]
     Active Substance: PACLITAXEL
     Dosage: 340 MILLIGRAM, EVERY 3 WEEKS ((CUMULATIVE DOSE TO FIRST REACTION:2039.535MG)
     Route: 042
     Dates: start: 20150820, end: 20150820
  57. PACLITAXEL [Suspect]
     Active Substance: PACLITAXEL
     Dosage: 450 MILLIGRAM, EVERY 2 WEEKS (LOADING DOSE)
     Route: 042
     Dates: start: 20150820, end: 20150820
  58. PACLITAXEL [Suspect]
     Active Substance: PACLITAXEL
     Dosage: 340 MILLIGRAM, THREE TIMES A WEEK
     Route: 042
     Dates: start: 20150820, end: 20150820
  59. PACLITAXEL [Suspect]
     Active Substance: PACLITAXEL
     Dosage: 450 MILLIGRAM, THREE TIMES A WEEK
     Route: 042
     Dates: start: 20150820, end: 20150820
  60. PACLITAXEL [Suspect]
     Active Substance: PACLITAXEL
     Dosage: 450 MILLIGRAM, THREE TIMES A WEEK
     Route: 042
     Dates: start: 20150820, end: 20150820
  61. PACLITAXEL [Suspect]
     Active Substance: PACLITAXEL
     Dosage: 450 MILLIGRAM, EVERY 3 WEEKS (CUMULATIVE DOSE TO FIRST REACTION:2039.535MG)
     Route: 042
     Dates: start: 20150820, end: 20150820
  62. PACLITAXEL [Suspect]
     Active Substance: PACLITAXEL
     Dosage: 450 MILLIGRAM, EVERY 3 WEEKS ((CUMULATIVE DOSE TO FIRST REACTION:2039.535MG)
     Route: 042
     Dates: start: 20150820, end: 20150820
  63. PACLITAXEL [Suspect]
     Active Substance: PACLITAXEL
     Dosage: 340 MILLIGRAM, THREE TIMES A WEEK ()
     Route: 042
     Dates: start: 20150910, end: 20151022
  64. PACLITAXEL [Suspect]
     Active Substance: PACLITAXEL
     Dosage: 340 MILLIGRAM, EVERY 3 WEEKS ((CUMULATIVE DOSE TO FIRST REACTION:2039.535MG)
     Route: 042
     Dates: start: 20150910, end: 20150910
  65. PACLITAXEL [Suspect]
     Active Substance: PACLITAXEL
     Dosage: 340 MILLIGRAM, EVRY 3 WEEKS
     Route: 042
     Dates: start: 20150910, end: 20150910
  66. PACLITAXEL [Suspect]
     Active Substance: PACLITAXEL
     Dosage: 340 MILLIGRAM, THREE TIMES A WEEK (LOADING DOSE 450 MG FROM 30-JUL-2015 TO 20-AUG-2015 CUMULATIVE:85
     Route: 042
     Dates: start: 20150910, end: 20151022
  67. PACLITAXEL [Suspect]
     Active Substance: PACLITAXEL
     Dosage: 340 MILLIGRAM, EVERY 3 WEEKS ((CUMULATIVE DOSE TO FIRST REACTION:2039.535MG)
     Route: 042
     Dates: start: 20151022, end: 20151022
  68. PACLITAXEL [Suspect]
     Active Substance: PACLITAXEL
     Dosage: 340 MILLIGRAM, THREE TIMES A WEEK
     Route: 042
     Dates: start: 20151022, end: 20151022
  69. PACLITAXEL [Suspect]
     Active Substance: PACLITAXEL
     Dosage: 340 MILLIGRAM, EVERY 3 WEEKS
     Route: 042
     Dates: start: 20151022
  70. PACLITAXEL [Suspect]
     Active Substance: PACLITAXEL
     Indication: Breast cancer metastatic
     Dosage: 340 MILLIGRAM, EVERY 3 WEEKS (CUMULATIVE DOSE: 1473.334MG)
     Route: 042
     Dates: start: 20150609, end: 20150609
  71. PACLITAXEL [Suspect]
     Active Substance: PACLITAXEL
     Dosage: 450 MILLIGRAM, EVERY 3 WEEKS (LOADING DOSE)
     Route: 042
     Dates: start: 20150730, end: 20150730
  72. PACLITAXEL [Suspect]
     Active Substance: PACLITAXEL
     Dosage: 340 MILLIGRAM, EVERY 3 WEEKS (CUMULATIVE DOSE: 307.61905 MG))
     Route: 042
     Dates: start: 20150820, end: 20150820
  73. PACLITAXEL [Suspect]
     Active Substance: PACLITAXEL
     Dosage: 340 MILLIGRAM, EVERY 3 WEEKS (CUMULATIVE DOSE: 32.38095 MG)
     Route: 042
     Dates: start: 20150910
  74. PACLITAXEL [Suspect]
     Active Substance: PACLITAXEL
     Dosage: 340 MILLIGRAM, EVERY 3 WEEKS (CUMULATIVE DOSE: 712.381 MG)
     Route: 042
     Dates: start: 20151022
  75. PERTUZUMAB [Suspect]
     Active Substance: PERTUZUMAB
     Indication: Breast cancer metastatic
     Dosage: 840 MILLIGRAM, EVERY WEEK (420 MILLIGRAM)
     Route: 041
     Dates: start: 20150615, end: 20150615
  76. PERTUZUMAB [Suspect]
     Active Substance: PERTUZUMAB
     Indication: Product used for unknown indication
     Dosage: 840 MILLIGRAM (TOTAL; IN TOTAL)
     Route: 042
     Dates: start: 20150615, end: 20150615
  77. PERTUZUMAB [Suspect]
     Active Substance: PERTUZUMAB
     Dosage: 840 MILLIGRAM (DRUG INTERVAL DOSAGE UNIT NUMBER: 1 TOTAL)
     Route: 042
     Dates: start: 20150615, end: 20150615
  78. PERTUZUMAB [Suspect]
     Active Substance: PERTUZUMAB
     Dosage: 840 MILLIGRAM, THREE TIMES A WEEK
     Route: 042
     Dates: start: 20150615, end: 20150615
  79. PERTUZUMAB [Suspect]
     Active Substance: PERTUZUMAB
     Dosage: 840 MILLIGRAM, THREE TIMES A WEEK (LOADING DOSE)
     Route: 042
     Dates: start: 20150615, end: 20150615
  80. PERTUZUMAB [Suspect]
     Active Substance: PERTUZUMAB
     Dosage: 567 MILLIGRAM (TOTAL; IN TOTAL)
     Route: 041
     Dates: start: 20150616
  81. PERTUZUMAB [Suspect]
     Active Substance: PERTUZUMAB
     Dosage: 567 MG EVERY 3 WEEK (LOADING DOSE: DRUG STRUCTURE DOSAGE NUMBER: 840MG DRUG INTERVAL DOSAGE UNIT NUM
     Route: 041
     Dates: start: 20150616
  82. PERTUZUMAB [Suspect]
     Active Substance: PERTUZUMAB
     Dosage: 567 MILLIGRAM, EVERY WEEK
     Route: 041
     Dates: start: 20150616, end: 20150616
  83. PERTUZUMAB [Suspect]
     Active Substance: PERTUZUMAB
     Dosage: 420 MG, Q3W (MAINTAINANCE DOSE)
     Route: 042
     Dates: start: 20150709
  84. PERTUZUMAB [Suspect]
     Active Substance: PERTUZUMAB
     Dosage: 420 MILLIGRAM, EVERY 2 WEEKS (LOADING DOSE: DRUG STRUCTURE DOSAGE NUMBER: 840MG DRUG INTERVAL DOSAGE
     Route: 042
     Dates: start: 20150709
  85. PERTUZUMAB [Suspect]
     Active Substance: PERTUZUMAB
     Dosage: 420 MILLIGRAM, THREE TIMES A WEEK (MAINTAINACE DOSE. ALSO RECEIVED 840 MG FROM 15-JUN-2015 TO 15-JUN
     Route: 042
     Dates: start: 20150709
  86. PERTUZUMAB [Suspect]
     Active Substance: PERTUZUMAB
     Dosage: 420 MILLIGRAM, EVERY 2 WEEKS (MAINTAINACE DOSE)
     Route: 042
     Dates: start: 20150709, end: 20150709
  87. PERTUZUMAB [Suspect]
     Active Substance: PERTUZUMAB
     Dosage: 420 MILLIGRAM, EVERY WEEK
     Route: 041
     Dates: start: 20150709, end: 20150709
  88. PERTUZUMAB [Suspect]
     Active Substance: PERTUZUMAB
     Dosage: 420 MILLIGRAM, THREE TIMES A WEEK
     Route: 042
     Dates: start: 20150709, end: 20150709
  89. PERTUZUMAB [Suspect]
     Active Substance: PERTUZUMAB
     Dosage: 10 MILLIGRAM, ONCE A DAY
     Route: 041
     Dates: start: 20150907
  90. TRASTUZUMAB [Suspect]
     Active Substance: TRASTUZUMAB
     Indication: Breast cancer metastatic
     Dosage: 356
     Route: 065
  91. TRASTUZUMAB [Suspect]
     Active Substance: TRASTUZUMAB
     Dosage: 1260 MILLIGRAM, EVERY WEEK (420 MILLIGRAM))
     Route: 041
     Dates: start: 20150609
  92. TRASTUZUMAB [Suspect]
     Active Substance: TRASTUZUMAB
     Dosage: 567 MILLIGRAM (LOADING DOSE)
     Route: 042
     Dates: start: 20150616, end: 20150616
  93. TRASTUZUMAB [Suspect]
     Active Substance: TRASTUZUMAB
     Dosage: 567 MILLIGRAM, ONCE A DAY ((LOADING DOSE); IN TOTAL)
     Route: 041
     Dates: start: 20150616, end: 20150616
  94. TRASTUZUMAB [Suspect]
     Active Substance: TRASTUZUMAB
     Dosage: 567 MILLIGRAM (TOTAL (LOADING DOSE)
     Route: 041
     Dates: start: 20150616, end: 20150616
  95. TRASTUZUMAB [Suspect]
     Active Substance: TRASTUZUMAB
     Dosage: 567 MILLIGRAM (LOADING DOSE)
     Route: 042
     Dates: start: 20150616, end: 20150616
  96. TRASTUZUMAB [Suspect]
     Active Substance: TRASTUZUMAB
     Dosage: 567 MILLIGRAM ((LOADING DOSE) (TOTAL))
     Route: 041
     Dates: start: 20150616, end: 20150616
  97. TRASTUZUMAB [Suspect]
     Active Substance: TRASTUZUMAB
     Dosage: 420 MILLIGRAM, TWO TIMES A WEEK (Q3W)
     Route: 042
     Dates: start: 20150709, end: 20150709
  98. TRASTUZUMAB [Suspect]
     Active Substance: TRASTUZUMAB
     Dosage: 420 MILLIGRAM, THREE TIMES A WEEK (MAINTAINANCE DOSE)
     Route: 041
     Dates: start: 20150709, end: 20150709
  99. TRASTUZUMAB [Suspect]
     Active Substance: TRASTUZUMAB
     Dosage: 1260 MILLIGRAM, EVERY WEEK (420 MILLIGRAM)
     Route: 041
     Dates: start: 20150709, end: 20150709
  100. TRASTUZUMAB [Suspect]
     Active Substance: TRASTUZUMAB
     Dosage: 420 MILLIGRAM (MAINTENANCE DOSE)
     Route: 042
     Dates: start: 20150709, end: 20150709
  101. TRASTUZUMAB [Suspect]
     Active Substance: TRASTUZUMAB
     Dosage: 420 MILLIGRAM (LOADING DOSE. RECEIVED MAINTAINANCE DOSE 420 MG ON 09-JUL-2015)
     Route: 065
     Dates: start: 20150709
  102. CHLORPHENIRAMINE MALEATE [Concomitant]
     Active Substance: CHLORPHENIRAMINE MALEATE
     Indication: Product used for unknown indication
     Dosage: 10 MILLIGRAM, ONCE A DAY
     Route: 041
     Dates: start: 20150709, end: 20150709
  103. CHLORPHENIRAMINE MALEATE [Concomitant]
     Active Substance: CHLORPHENIRAMINE MALEATE
     Dosage: 10 MILLIGRAM
     Route: 042
     Dates: start: 20150709, end: 20150709
  104. AMOXICILLIN\CLAVULANATE POTASSIUM [Concomitant]
     Active Substance: AMOXICILLIN\CLAVULANATE POTASSIUM
     Indication: Cough
     Dosage: UNK (COUGH WITH YELLOW SPUTUM)
     Route: 048
     Dates: start: 20180110, end: 20180117
  105. COCODAMOL [Concomitant]
     Active Substance: ACETAMINOPHEN\CODEINE PHOSPHATE
     Indication: Product used for unknown indication
     Dosage: 2000 MILLIGRAM, ONCE A DAY
     Route: 048
  106. COCODAMOL [Concomitant]
     Active Substance: ACETAMINOPHEN\CODEINE PHOSPHATE
     Dosage: 500 MILLIGRAM, ONCE A DAY
     Route: 048
  107. CODEINE PHOSPHATE [Concomitant]
     Active Substance: CODEINE PHOSPHATE
     Indication: Product used for unknown indication
     Dosage: 500 MILLIGRAM, ONCE A DAY
     Route: 048
  108. CODEINE PHOSPHATE [Concomitant]
     Active Substance: CODEINE PHOSPHATE
     Dosage: 2000 MILLIGRAM, ONCE A DAY
     Route: 048
  109. CODEINE PHOSPHATE [Concomitant]
     Active Substance: CODEINE PHOSPHATE
     Dosage: UNK
     Route: 065
  110. DOMPERIDONE [Concomitant]
     Active Substance: DOMPERIDONE
     Indication: Product used for unknown indication
     Dosage: 10 MILLIGRAM, ONCE A DAY (30 MILLIGRAM)
     Route: 048
     Dates: start: 20150709
  111. DOMPERIDONE [Concomitant]
     Active Substance: DOMPERIDONE
     Dosage: 30 MILLIGRAM, ONCE A DAY
     Route: 048
     Dates: start: 20190709
  112. HYDROCORTISONE [Concomitant]
     Active Substance: HYDROCORTISONE
     Indication: Product used for unknown indication
     Dosage: 100 MILLIGRAM, ONCE A DAY
     Route: 041
     Dates: start: 20150709, end: 20150709
  113. HYDROCORTISONE [Concomitant]
     Active Substance: HYDROCORTISONE
     Dosage: 100 MILLIGRAM (1X; IN TOTAL)
     Route: 042
     Dates: start: 20150709, end: 20150709
  114. IMODIUM [Concomitant]
     Active Substance: LOPERAMIDE HYDROCHLORIDE
     Indication: Diarrhoea
     Dosage: 2 MILLIGRAM, AS NECESSARY (PRN)
     Route: 048
  115. METFORMIN [Concomitant]
     Active Substance: METFORMIN HYDROCHLORIDE
     Indication: Diabetes mellitus
     Dosage: 2 GRAM, ONCE A DAY
     Route: 048
  116. METFORMIN [Concomitant]
     Active Substance: METFORMIN HYDROCHLORIDE
     Dosage: 1 GRAM, ONCE A DAY
     Route: 048
  117. TRAMADOL [Concomitant]
     Active Substance: TRAMADOL
     Indication: Pain
     Dosage: 100 MILLIGRAM, ONCE A DAY
     Route: 048
  118. TRAMADOL [Concomitant]
     Active Substance: TRAMADOL
     Dosage: 50 MILLIGRAM, ONCE A DAY
     Route: 048

REACTIONS (10)
  - Chest pain [Not Recovered/Not Resolved]
  - Bone pain [Not Recovered/Not Resolved]
  - Swelling [Not Recovered/Not Resolved]
  - Mucosal inflammation [Recovered/Resolved]
  - Neuropathy peripheral [Not Recovered/Not Resolved]
  - Febrile neutropenia [Recovered/Resolved]
  - Diarrhoea [Recovered/Resolved]
  - Fatigue [Recovered/Resolved]
  - Vomiting [Not Recovered/Not Resolved]
  - Nausea [Not Recovered/Not Resolved]

NARRATIVE: CASE EVENT DATE: 20150908
